FAERS Safety Report 8962722 (Version 1)
Quarter: 2012Q4

REPORT INFORMATION
  Report Type: Spontaneous
  Country: GB (occurrence: None)
  Receive Date: 20121206
  Receipt Date: 20121206
  Transmission Date: 20130627
  Serious: Yes (Other)
  Sender: FDA-Public Use
  Company Number: 2012AP004081

PATIENT
  Age: 61 Year
  Sex: Male

DRUGS (3)
  1. PERINDOPRIL ERBUMINE [Suspect]
  2. DICLOFENAC SODIUM (DICLOFENAC SODIUM) [Concomitant]
  3. VIAGRA (SILDENAFIL CITRATE) [Concomitant]

REACTIONS (2)
  - Cough [None]
  - Eosinophilic pneumonia [None]
